FAERS Safety Report 10078416 (Version 1)
Quarter: 2014Q2

REPORT INFORMATION
  Report Type: Spontaneous
  Country: US (occurrence: None)
  Receive Date: 20140401
  Receipt Date: 20140401
  Transmission Date: 20141212
  Serious: Yes (Other)
  Sender: FDA-Public Use
  Company Number: HA13-144-AE

PATIENT
  Age: 55 Year
  Sex: Female
  Weight: 81.65 kg

DRUGS (7)
  1. GABAPENTIN [Suspect]
     Indication: PAIN
     Route: 048
     Dates: start: 20130403, end: 20130404
  2. GABAPENTIN [Suspect]
     Indication: SLEEP STUDY
     Route: 048
     Dates: start: 20130403, end: 20130404
  3. PLAQUENIL [Concomitant]
  4. LORTAB [Concomitant]
  5. OMEPRAZOLE [Concomitant]
  6. CRESTOR [Concomitant]
  7. ESTRADIOL [Concomitant]

REACTIONS (25)
  - Myalgia [None]
  - Hypoaesthesia [None]
  - Dysarthria [None]
  - Stevens-Johnson syndrome [None]
  - Hypoaesthesia [None]
  - Hypoaesthesia oral [None]
  - Chest pain [None]
  - Headache [None]
  - Dry mouth [None]
  - Decreased appetite [None]
  - Dysgeusia [None]
  - Lip swelling [None]
  - Swollen tongue [None]
  - Oral pain [None]
  - Glossodynia [None]
  - Paraesthesia [None]
  - Ear pain [None]
  - Vision blurred [None]
  - Coordination abnormal [None]
  - Balance disorder [None]
  - Dizziness [None]
  - Nausea [None]
  - Vomiting [None]
  - Peripheral swelling [None]
  - Paraesthesia oral [None]
